FAERS Safety Report 7720158-6 (Version None)
Quarter: 2011Q3

REPORT INFORMATION
  Report Type: 
  Country: None (occurrence: None)
  Receive Date: 20110824
  Receipt Date: 20110815
  Transmission Date: 20111222
  Serious: Yes (Other)
  Sender: FDA-Public Use
  Company Number: THQ2011A04813

PATIENT
  Age: 58 Year
  Sex: Female

DRUGS (1)
  1. ACTOS [Suspect]
     Indication: DIABETES MELLITUS
     Dosage: 15 MG PER ORAL
     Route: 048

REACTIONS (1)
  - BLADDER CANCER [None]
